FAERS Safety Report 20924287 (Version 1)
Quarter: 2022Q2

REPORT INFORMATION
  Report Type: Spontaneous
  Country: US (occurrence: None)
  Receive Date: 20220606
  Receipt Date: 20220606
  Transmission Date: 20220721
  Serious: No
  Sender: FDA-Public Use
  Company Number: None

PATIENT
  Age: 46 Year
  Sex: Female

DRUGS (1)
  1. METHOTREXATE [Suspect]
     Active Substance: METHOTREXATE
     Indication: Rheumatoid arthritis
     Dosage: FREQUENCY : WEEKLY;?
     Route: 048
     Dates: start: 20220530, end: 20220531

REACTIONS (4)
  - Hallucination [None]
  - Abnormal dreams [None]
  - Night sweats [None]
  - Dissociation [None]

NARRATIVE: CASE EVENT DATE: 20220530
